FAERS Safety Report 8837473 (Version 1)
Quarter: 2012Q4

REPORT INFORMATION
  Report Type: 
  Country: US (occurrence: US)
  Receive Date: 20121012
  Receipt Date: 20121012
  Transmission Date: 20130627
  Serious: No
  Sender: FDA-Public Use
  Company Number: US-PFIZER INC-2012253433

PATIENT
  Age: 30 Year
  Sex: Male
  Weight: 118 kg

DRUGS (5)
  1. NEURONTIN [Suspect]
     Indication: NEUROPATHY PERIPHERAL
     Dosage: 800 mg, 3x/day
  2. NEURONTIN [Suspect]
     Indication: NEURALGIA
  3. NEURONTIN [Suspect]
     Indication: NEUROPATHY PERIPHERAL
  4. NORVASC [Suspect]
     Indication: HYPERTENSION
     Dosage: 5 mg, daily
     Dates: start: 2011
  5. NORVASC [Suspect]
     Indication: CARDIAC DISORDER

REACTIONS (1)
  - Influenza like illness [Not Recovered/Not Resolved]
